FAERS Safety Report 16668641 (Version 1)
Quarter: 2019Q3

REPORT INFORMATION
  Report Type: Spontaneous
  Country: US (occurrence: US)
  Receive Date: 20190619
  Receipt Date: 20190619
  Transmission Date: 20191004
  Serious: Yes (Disabling, Other)
  Sender: FDA-Public Use
  Company Number: None

PATIENT
  Age: 94 Year
  Sex: Female
  Weight: 72.12 kg

DRUGS (5)
  1. METOPROLOL. [Concomitant]
     Active Substance: METOPROLOL
  2. LOSARTAN POTASSIUM 50MG [Suspect]
     Active Substance: LOSARTAN POTASSIUM
     Indication: HYPERTENSION
     Dosage: ?          QUANTITY:1 DF DOSAGE FORM;?
     Route: 048
     Dates: start: 20190411, end: 20190430
  3. TORSEMIDE. [Concomitant]
     Active Substance: TORSEMIDE
  4. DILTIAZEM. [Concomitant]
     Active Substance: DILTIAZEM
  5. WARFARIN [Concomitant]
     Active Substance: WARFARIN

REACTIONS (4)
  - Dyspnoea [None]
  - Asthenia [None]
  - Atrial fibrillation [None]
  - Cystitis [None]

NARRATIVE: CASE EVENT DATE: 201904
